FAERS Safety Report 4401364-5 (Version None)
Quarter: 2004Q3

REPORT INFORMATION
  Report Type: 
  Country: None (occurrence: None)
  Receive Date: 20040907
  Receipt Date: 20040325
  Transmission Date: 20050211
  Serious: No
  Sender: FDA-Public Use
  Company Number: US-BRISTOL-MYERS SQUIBB COMPANY-12542056

PATIENT
  Age: 74 Year
  Sex: Female
  Weight: 55 kg

DRUGS (6)
  1. COUMADIN [Suspect]
     Indication: HEART VALVE REPLACEMENT
     Route: 048
  2. TINCTURE OF BELLADONNA [Concomitant]
     Indication: DIARRHOEA
     Dosage: 2 TEASPOONFULS TID FOR 3 WEEKS
     Dates: end: 20040331
  3. LANOXIN [Concomitant]
  4. COZAAR [Concomitant]
  5. TENORMIN [Concomitant]
  6. LASIX [Concomitant]

REACTIONS (2)
  - DIARRHOEA [None]
  - INTERNATIONAL NORMALISED RATIO ABNORMAL [None]
